FAERS Safety Report 16421974 (Version 1)
Quarter: 2019Q2

REPORT INFORMATION
  Report Type: Spontaneous
  Country: US (occurrence: US)
  Receive Date: 20190612
  Receipt Date: 20190612
  Transmission Date: 20190711
  Serious: No
  Sender: FDA-Public Use
  Company Number: US-PERRIGO-18US014816

PATIENT
  Age: 23 Year
  Sex: Male
  Weight: 95.24 kg

DRUGS (1)
  1. MINOXIDIL. [Suspect]
     Active Substance: MINOXIDIL
     Indication: ANDROGENETIC ALOPECIA
     Dosage: 1/2 CAPFUL, BID
     Route: 061
     Dates: start: 20181201, end: 20181210

REACTIONS (2)
  - Hair texture abnormal [Unknown]
  - Application site rash [Unknown]

NARRATIVE: CASE EVENT DATE: 20181210
